FAERS Safety Report 8386033-1 (Version None)
Quarter: 2012Q2

REPORT INFORMATION
  Report Type: 
  Country: None (occurrence: None)
  Receive Date: 20120525
  Receipt Date: 20120524
  Transmission Date: 20120825
  Serious: Yes (Other)
  Sender: FDA-Public Use
  Company Number: US-PFIZER INC-2012126277

PATIENT
  Sex: Female
  Weight: 81.633 kg

DRUGS (5)
  1. SERTRALINE HYDROCHLORIDE [Suspect]
     Dosage: 37 MG, DAILY
     Route: 048
     Dates: start: 20120501
  2. SERTRALINE HYDROCHLORIDE [Suspect]
     Indication: PANIC ATTACK
     Dosage: 12 MG, DAILY
     Route: 048
     Dates: start: 20120401, end: 20120101
  3. SERTRALINE HYDROCHLORIDE [Suspect]
     Indication: ANXIETY
     Dosage: 25 MG, DAILY
     Route: 048
     Dates: start: 20120101, end: 20120501
  4. ATIVAN [Concomitant]
     Dosage: 0.5 MG, 2X/DAY
     Dates: start: 20120401
  5. LISINOPRIL [Concomitant]
     Indication: HYPERTENSION
     Dosage: 10 MG, DAILY

REACTIONS (3)
  - TREMOR [None]
  - DYSKINESIA [None]
  - MUSCLE TWITCHING [None]
